FAERS Safety Report 6079368-9 (Version None)
Quarter: 2009Q1

REPORT INFORMATION
  Report Type: 
  Country: None (occurrence: None)
  Receive Date: 20090216
  Receipt Date: 20090210
  Transmission Date: 20090719
  Serious: Yes (Disabling)
  Sender: FDA-Public Use
  Company Number: FR-ABBOTT-09P-056-0499796-00

PATIENT
  Sex: Female

DRUGS (3)
  1. DEPAKOTE [Suspect]
     Indication: BIPOLAR DISORDER
     Route: 048
     Dates: start: 20081101
  2. DEPAKOTE [Suspect]
     Dates: start: 20070401, end: 20081101
  3. DEPAKOTE [Suspect]
     Dates: start: 20070101, end: 20070401

REACTIONS (1)
  - PRESBYACUSIS [None]
